FAERS Safety Report 7216175-5 (Version None)
Quarter: 2011Q1

REPORT INFORMATION
  Report Type: 
  Country: None (occurrence: None)
  Receive Date: 20110107
  Receipt Date: 20101231
  Transmission Date: 20110831
  Serious: Yes (Death)
  Sender: FDA-Public Use
  Company Number: US-PFIZER INC-2011001584

PATIENT
  Age: 70 Year
  Sex: Female

DRUGS (17)
  1. FLUOXETINE [Suspect]
  2. ACETAMINOPHEN [Suspect]
  3. CALCIUM [Suspect]
  4. PREGABALIN [Suspect]
  5. ACETAMINOPHEN AND OXYCODONE HCL [Suspect]
  6. DESIPRAMIDE HCL [Suspect]
  7. CHLORDIAZEPOXIDE [Suspect]
  8. CYCLOBENZAPRINE [Suspect]
  9. LISINOPRIL [Suspect]
  10. TORSEMIDE [Suspect]
  11. METHADONE HCL [Suspect]
  12. LOVASTATIN [Suspect]
  13. FOLIC ACID [Suspect]
  14. MELOXICAM [Suspect]
  15. HYDROMORPHONE HCL [Suspect]
  16. DULOXETIME HYDROCHLORIDE [Suspect]
  17. CLONAZEPAM [Suspect]

REACTIONS (1)
  - COMPLETED SUICIDE [None]
